FAERS Safety Report 8851324 (Version 1)
Quarter: 2012Q4

REPORT INFORMATION
  Report Type: 
  Country: US (occurrence: US)
  Receive Date: 20121020
  Receipt Date: 20121020
  Transmission Date: 20130627
  Serious: No
  Sender: FDA-Public Use
  Company Number: US-B.I. PHARMACEUTICALS,INC./RIDGEFIELD-2012-BP-25836BP

PATIENT
  Sex: Female
  Weight: 64 kg

DRUGS (7)
  1. PRADAXA [Suspect]
     Indication: ATRIAL FIBRILLATION
     Dosage: 300 mg
     Route: 048
     Dates: start: 2010
  2. COMBIVENT [Suspect]
     Indication: DYSPNOEA
     Dosage: ;
     Route: 055
     Dates: start: 2010
  3. FUROSEMIDE [Concomitant]
     Indication: FLUID RETENTION
     Dosage: 40 mg
     Route: 048
     Dates: start: 2007
  4. PRAVASTATIN [Concomitant]
     Indication: BLOOD CHOLESTEROL INCREASED
     Dosage: 20 mg
     Route: 048
     Dates: start: 2006
  5. DIGOXIN [Concomitant]
     Indication: ATRIAL FIBRILLATION
     Dosage: 125 mcg
     Route: 048
     Dates: start: 2008
  6. KLOR-CON [Concomitant]
     Indication: MINERAL SUPPLEMENTATION
     Dosage: 10 mEq
     Route: 048
     Dates: start: 2007
  7. CARVEDILOL [Concomitant]
     Indication: HYPERTENSION
     Dosage: 25 mg
     Route: 048
     Dates: start: 2002

REACTIONS (7)
  - Contusion [Recovered/Resolved]
  - Limb injury [Recovered/Resolved]
  - Gastric disorder [Not Recovered/Not Resolved]
  - Injury [Recovered/Resolved]
  - Limb injury [Recovered/Resolved]
  - Wound haemorrhage [Recovered/Resolved]
  - Contusion [Recovered/Resolved]
